FAERS Safety Report 11472394 (Version 1)
Quarter: 2015Q3

REPORT INFORMATION
  Report Type: Spontaneous
  Country: US (occurrence: US)
  Receive Date: 20150908
  Receipt Date: 20150908
  Transmission Date: 20151125
  Serious: No
  Sender: FDA-Public Use
  Company Number: US-BAYER-2015-411561

PATIENT
  Age: 94 Year
  Sex: Male
  Weight: 77.98 kg

DRUGS (8)
  1. PLAVIX [Concomitant]
     Active Substance: CLOPIDOGREL BISULFATE
  2. LIPITOR [Concomitant]
     Active Substance: ATORVASTATIN CALCIUM
  3. RESTASIS [Concomitant]
     Active Substance: CYCLOSPORINE
  4. ADVAIR HFA [Concomitant]
     Active Substance: FLUTICASONE PROPIONATE\SALMETEROL XINAFOATE
  5. AVAPRO [Concomitant]
     Active Substance: IRBESARTAN
  6. NEXIUM [Concomitant]
     Active Substance: ESOMEPRAZOLE MAGNESIUM
  7. ALEVE [Suspect]
     Active Substance: NAPROXEN SODIUM
  8. STARLIX [Concomitant]
     Active Substance: NATEGLINIDE

REACTIONS (1)
  - Drug effect increased [None]
